FAERS Safety Report 5441980-5 (Version None)
Quarter: 2007Q3

REPORT INFORMATION
  Report Type: 
  Country: None (occurrence: None)
  Receive Date: 20070904
  Receipt Date: 20070831
  Transmission Date: 20080115
  Serious: Yes (Hospitalization)
  Sender: FDA-Public Use
  Company Number: B0484970A

PATIENT
  Age: 73 Year
  Sex: Female

DRUGS (14)
  1. CLAMOXYL [Suspect]
     Indication: URINARY TRACT INFECTION
     Dosage: 1G THREE TIMES PER DAY
     Route: 048
     Dates: start: 20070110, end: 20070118
  2. DUPHALAC [Concomitant]
     Dosage: 20G PER DAY
     Route: 048
  3. SEROPRAM [Concomitant]
     Indication: DEPRESSION
     Dosage: 20MG PER DAY
     Route: 048
  4. FUROSEMIDE [Concomitant]
     Dosage: 20MG PER DAY
     Route: 048
  5. HEMIGOXINE [Concomitant]
     Dosage: .125MG PER DAY
     Route: 048
  6. EDUCTYL [Concomitant]
     Dosage: 1UNIT PER DAY
     Route: 054
  7. RAMIPRIL [Concomitant]
     Dosage: 7.5MG PER DAY
     Route: 065
  8. POTASSIUM CHLORIDE [Concomitant]
     Route: 065
  9. ASPEGIC 250 [Concomitant]
     Route: 065
  10. LORAZEPAM [Concomitant]
     Route: 065
  11. ATHYMIL 60 [Concomitant]
     Route: 065
  12. ACETAMINOPHEN [Concomitant]
     Route: 065
  13. DERMOVAL [Concomitant]
     Route: 065
  14. KETODERM [Concomitant]
     Route: 065

REACTIONS (9)
  - BACTERIA URINE IDENTIFIED [None]
  - BLOOD CREATINE ABNORMAL [None]
  - CARDIOACTIVE DRUG LEVEL INCREASED [None]
  - DEHYDRATION [None]
  - DIARRHOEA [None]
  - HYPOKALAEMIA [None]
  - METABOLIC ACIDOSIS [None]
  - PYREXIA [None]
  - RENAL FAILURE ACUTE [None]
